FAERS Safety Report 6795745-2 (Version None)
Quarter: 2010Q2

REPORT INFORMATION
  Report Type: 
  Country: None (occurrence: None)
  Receive Date: 20100625
  Receipt Date: 20100622
  Transmission Date: 20101027
  Serious: Yes (Other)
  Sender: FDA-Public Use
  Company Number: AU-BRISTOL-MYERS SQUIBB COMPANY-15087588

PATIENT
  Age: 47 Year
  Sex: Female
  Weight: 58 kg

DRUGS (1)
  1. ABILIFY [Suspect]
     Dosage: DOSE REDUCED TO 15 MG ON 01-AUG-2009.
     Route: 048
     Dates: start: 20090409

REACTIONS (3)
  - AGITATION [None]
  - AKATHISIA [None]
  - PSYCHOTIC DISORDER [None]
